FAERS Safety Report 11000337 (Version 1)
Quarter: 2015Q2

REPORT INFORMATION
  Report Type: Spontaneous
  Country: US (occurrence: US)
  Receive Date: 20150408
  Receipt Date: 20150408
  Transmission Date: 20150821
  Serious: No
  Sender: FDA-Public Use
  Company Number: US-SA-2014SA118284

PATIENT
  Sex: Female

DRUGS (2)
  1. ZYRTEC [Suspect]
     Active Substance: CETIRIZINE HYDROCHLORIDE
     Route: 065
     Dates: start: 20140831
  2. ALLEGRA [Suspect]
     Active Substance: FEXOFENADINE HYDROCHLORIDE
     Indication: MULTIPLE ALLERGIES
     Route: 048
     Dates: start: 1990

REACTIONS (7)
  - Dysphonia [Unknown]
  - Nasal congestion [Unknown]
  - Drug dose omission [Unknown]
  - Extra dose administered [Unknown]
  - Pruritus generalised [Unknown]
  - Therapeutic response decreased [Unknown]
  - Feeling abnormal [Unknown]
